FAERS Safety Report 5456463-6 (Version None)
Quarter: 2007Q3

REPORT INFORMATION
  Report Type: 
  Country: None (occurrence: None)
  Receive Date: 20070914
  Receipt Date: 20070914
  Transmission Date: 20080115
  Serious: Yes (Hospitalization)
  Sender: FDA-Public Use
  Company Number: None

PATIENT
  Age: 81 Year
  Sex: Male
  Weight: 73 kg

DRUGS (1)
  1. AMPICILLIN [Suspect]
     Indication: ENDOCARDITIS
     Dosage: 2 GRAMS Q6H  IV
     Route: 042
     Dates: start: 20070827, end: 20070906

REACTIONS (1)
  - PANCYTOPENIA [None]
